FAERS Safety Report 8566546-X (Version None)
Quarter: 2012Q3

REPORT INFORMATION
  Report Type: 
  Country: None (occurrence: None)
  Receive Date: 20120803
  Receipt Date: 20111116
  Transmission Date: 20120928
  Serious: No
  Sender: FDA-Public Use
  Company Number: US-ABBOTT-11P-163-0874532-00

PATIENT
  Sex: Female
  Weight: 79.45 kg

DRUGS (5)
  1. UNKNOWN CARDIAC MEDICATION [Concomitant]
     Indication: PRODUCT USED FOR UNKNOWN INDICATION
  2. OTHER UNKNOWN MEDICATION(S) [Concomitant]
     Indication: PRODUCT USED FOR UNKNOWN INDICATION
  3. UNKNOWN MEDICATION [Concomitant]
     Indication: PANIC ATTACK
  4. UNKNOWN SEIZURE MEDICATION [Concomitant]
     Indication: PRODUCT USED FOR UNKNOWN INDICATION
  5. NIASPAN [Suspect]
     Indication: BLOOD CHOLESTEROL INCREASED
     Dosage: 500 MG Q HS
     Dates: start: 20110815

REACTIONS (3)
  - PRURITUS [None]
  - FLUSHING [None]
  - PANIC ATTACK [None]
